FAERS Safety Report 5532184-6 (Version None)
Quarter: 2007Q4

REPORT INFORMATION
  Report Type: 
  Country: None (occurrence: None)
  Receive Date: 20071128
  Receipt Date: 20070920
  Transmission Date: 20080405
  Serious: Yes (Death, Hospitalization)
  Sender: FDA-Public Use
  Company Number: 16055

PATIENT
  Age: 82 Year
  Sex: Female

DRUGS (51)
  1. CYTARABINE [Suspect]
     Indication: ACUTE MYELOID LEUKAEMIA
     Dosage: 20 MG/M2 PER_CYCLE SC
     Route: 058
     Dates: start: 20061024, end: 20061130
  2. GLYCOPYRROLATE [Concomitant]
  3. MAXOLON [Concomitant]
  4. PHOSPHATE-SANDOZ [Concomitant]
  5. ATORVASTATIN [Concomitant]
  6. PANADEINE CO. MFR: NOT SPECIFIED [Concomitant]
  7. ALLOPURINOL [Concomitant]
  8. AMIODARONE HYDROCHLORINE [Concomitant]
  9. BETAGAN. MFR: NOT SPECIFIED [Concomitant]
  10. BETAMIN /00056102/. MFR: NOT SPECIFIED [Concomitant]
  11. DIGOXIN [Concomitant]
  12. FOSAMAX [Concomitant]
  13. IMODIUM /00384302/. MFR: NOT SPECIFIED [Concomitant]
  14. LIPITOR /01326101/. MFR: NOT SPECIFIED [Concomitant]
  15. MAGMIN [Concomitant]
  16. MEGAFOL [Concomitant]
  17. METAMUCIL /00029101/. MFR: NOT SPECIFIED [Concomitant]
  18. MONOPRIL [Concomitant]
  19. NEURONTIN. MFR: NOT SPECIFIED [Concomitant]
  20. NIFEDIPINE [Concomitant]
  21. OSTELIN [Concomitant]
  22. PANAMAX [Concomitant]
  23. PARIET. MFR: NOT SPECIFIED [Concomitant]
  24. PREDNISOLONE [Concomitant]
  25. SLOW-K. MFR: NOT SPECIFIED [Concomitant]
  26. THIAMINE NITRATE [Concomitant]
  27. TRANSIDERM-NITRO. MFR: NOT SPECIFIED [Concomitant]
  28. VITAMIN B12 /00056201/ [Concomitant]
  29. ZOLOFT. MFR: NOT SPECIFIED [Concomitant]
  30. GENTAMICIN [Concomitant]
  31. METRONIDAZOLE [Concomitant]
  32. MAGNESIUM ASPARTATE [Concomitant]
  33. AMIODARONE HCL [Concomitant]
  34. CHOLECALCIFEROL [Concomitant]
  35. FOLIC ACID [Concomitant]
  36. HYDROCORTISONE [Concomitant]
  37. VITAMIN K [Concomitant]
  38. CLARITIN. MFR: NOT SPECIFIED [Concomitant]
  39. MAGNESIUM /00454301/ [Concomitant]
  40. PARACETAMOL [Concomitant]
  41. HYDROXYUREA [Concomitant]
  42. THIOGUANINE [Concomitant]
  43. PREDNISONE [Concomitant]
  44. SERTRALINE [Concomitant]
  45. GABAPENTIN [Concomitant]
  46. RABEPRAZOLE SODIUM [Concomitant]
  47. CEFTAZIDINE [Concomitant]
  48. ZYRTEC /00884302/. MFR: NOT SPECIFIED [Concomitant]
  49. MORPHINE [Concomitant]
  50. MIDAZOLAM HCL [Concomitant]
  51. HALOPERIDOL [Concomitant]

REACTIONS (11)
  - ACUTE MYELOID LEUKAEMIA [None]
  - DECREASED APPETITE [None]
  - DIARRHOEA [None]
  - FATIGUE [None]
  - HYPOTENSION [None]
  - LETHARGY [None]
  - LEUKAEMIA RECURRENT [None]
  - LOSS OF CONSCIOUSNESS [None]
  - MALAISE [None]
  - PALLOR [None]
  - SKIN TURGOR DECREASED [None]
